FAERS Safety Report 9096127 (Version 7)
Quarter: 2014Q2

REPORT INFORMATION
  Report Type: Report from Study
  Country: BR (occurrence: BR)
  Receive Date: 20130207
  Receipt Date: 20140609
  Transmission Date: 20141212
  Serious: Yes (Hospitalization, Disabling, Other)
  Sender: FDA-Public Use
  Company Number: BR-ROCHE-679969

PATIENT
  Age: 53 Year
  Sex: Female
  Weight: 76 kg

DRUGS (20)
  1. MABTHERA [Suspect]
     Indication: RHEUMATOID ARTHRITIS
     Dosage: ROUTE: UNKNOWN. SECOND CYCLE.
     Route: 042
     Dates: start: 20080701, end: 20090401
  2. MABTHERA [Suspect]
     Dosage: THIRD CYCLE. DOSE: 500 MG/50ML.
     Route: 042
     Dates: start: 20091216, end: 20100111
  3. MABTHERA [Suspect]
     Dosage: LATEST INFUSION WAS ADMISTERED ON 24/SEP/2013
     Route: 042
  4. ACETYLSALICYLIC ACID [Concomitant]
  5. SULPHASALAZINE [Concomitant]
     Route: 065
  6. GABAPENTIN [Concomitant]
     Route: 065
  7. PURAN T4 [Concomitant]
     Indication: THYROID DISORDER
  8. OMEPRAZOLE [Concomitant]
     Indication: GASTRIC DISORDER
  9. PAROXIL [Concomitant]
  10. BROMAZEPAM [Concomitant]
     Route: 065
  11. FOLIC ACID [Concomitant]
     Route: 065
  12. HYDROCHLOROTHIAZIDE [Concomitant]
     Indication: HYPERTENSION
     Route: 065
  13. SIMVASTATIN [Concomitant]
     Indication: BLOOD CHOLESTEROL INCREASED
  14. METHOTREXATE [Concomitant]
     Dosage: FREQUENCY: 6 TABLET
     Route: 065
  15. PREDNISONE [Concomitant]
     Route: 065
  16. RANITIDINE [Concomitant]
     Indication: PREMEDICATION
  17. LEXOTAN [Concomitant]
  18. DIMETHICONE [Concomitant]
  19. METFORMIN [Concomitant]
  20. PAROXETINE [Concomitant]

REACTIONS (25)
  - Arthralgia [Unknown]
  - Hypertension [Recovered/Resolved]
  - Injection site infection [Recovered/Resolved]
  - Disability [Unknown]
  - Back pain [Not Recovered/Not Resolved]
  - Arthralgia [Not Recovered/Not Resolved]
  - Nosocomial infection [Recovered/Resolved]
  - Phlebitis [Recovered/Resolved]
  - Nervous system disorder [Unknown]
  - Syncope [Unknown]
  - Amnesia [Unknown]
  - Drug ineffective [Unknown]
  - Pyrexia [Unknown]
  - Gait disturbance [Not Recovered/Not Resolved]
  - Hypertension [Recovered/Resolved]
  - Headache [Recovered/Resolved]
  - Pruritus generalised [Recovered/Resolved]
  - Immunodeficiency [Not Recovered/Not Resolved]
  - Urinary tract infection [Unknown]
  - Infusion site infection [Unknown]
  - Fall [Unknown]
  - Pain in extremity [Not Recovered/Not Resolved]
  - Limb injury [Not Recovered/Not Resolved]
  - Bone marrow disorder [Not Recovered/Not Resolved]
  - Intervertebral disc protrusion [Not Recovered/Not Resolved]
